FAERS Safety Report 5806291-4 (Version None)
Quarter: 2008Q3

REPORT INFORMATION
  Report Type: 
  Country: None (occurrence: None)
  Receive Date: 20080708
  Receipt Date: 20080624
  Transmission Date: 20090109
  Serious: Yes (Other)
  Sender: FDA-Public Use
  Company Number: US-GDP-08404126

PATIENT
  Sex: Female
  Weight: 90.7194 kg

DRUGS (1)
  1. METROGEL [Suspect]
     Indication: DRUG USE FOR UNKNOWN INDICATION
     Dosage: (TOPICAL)
     Route: 061
     Dates: end: 20080610

REACTIONS (1)
  - NEUROPATHY PERIPHERAL [None]
